FAERS Safety Report 11052495 (Version 2)
Quarter: 2015Q2

REPORT INFORMATION
  Report Type: Spontaneous
  Country: US (occurrence: US)
  Receive Date: 20150421
  Receipt Date: 20150424
  Transmission Date: 20150821
  Serious: No
  Sender: FDA-Public Use
  Company Number: US-PFIZER INC-2015136477

PATIENT
  Age: 69 Year
  Sex: Male

DRUGS (2)
  1. PROTONIX [Suspect]
     Active Substance: PANTOPRAZOLE SODIUM
     Indication: GASTROOESOPHAGEAL REFLUX DISEASE
     Dosage: 40 MG, UNK
  2. LISINOPRIL. [Interacting]
     Active Substance: LISINOPRIL
     Dosage: 40 MG, UNK

REACTIONS (2)
  - Blood pressure inadequately controlled [Unknown]
  - Inhibitory drug interaction [Unknown]
